FAERS Safety Report 13300430 (Version 3)
Quarter: 2017Q2

REPORT INFORMATION
  Report Type: Spontaneous
  Country: HU (occurrence: HU)
  Receive Date: 20170307
  Receipt Date: 20170414
  Transmission Date: 20170830
  Serious: Yes (Hospitalization, Other)
  Sender: FDA-Public Use
  Company Number: HU-AMGEN-HUNSP2017031706

PATIENT
  Age: 47 Year
  Sex: Female

DRUGS (5)
  1. INDOMETACIN [Concomitant]
     Active Substance: INDOMETHACIN
     Dosage: UNK
  2. CARVOL [Concomitant]
     Dosage: UNK
  3. VIDOTIN [Concomitant]
     Dosage: UNK
  4. ENBREL [Suspect]
     Active Substance: ETANERCEPT
     Indication: ANKYLOSING SPONDYLITIS
     Dosage: 50 MG, WEEKLY
     Route: 058
     Dates: start: 20120920, end: 20170209
  5. EMILLAN [Concomitant]
     Dosage: UNK

REACTIONS (6)
  - Dizziness [Recovering/Resolving]
  - Vascular encephalopathy [Unknown]
  - Angiopathy [Unknown]
  - Cerebral disorder [Unknown]
  - Diplopia [Recovered/Resolved]
  - Nystagmus [Unknown]

NARRATIVE: CASE EVENT DATE: 201702
